FAERS Safety Report 17388576 (Version 1)
Quarter: 2020Q1

REPORT INFORMATION
  Report Type: Spontaneous
  Country: US (occurrence: US)
  Receive Date: 20200123
  Receipt Date: 20200123
  Transmission Date: 20200409
  Serious: No
  Sender: FDA-Public Use
  Company Number: None

PATIENT
  Age: 32 Year
  Sex: Female

DRUGS (3)
  1. MULTI VITAMINS [Concomitant]
     Active Substance: VITAMINS
  2. DOVE (ALUMINUM CHLOROHYDRATE) [Suspect]
     Active Substance: ALUMINUM CHLOROHYDRATE
     Indication: PERSONAL HYGIENE
     Dosage: SPRAYED UNDER ARMPITS
     Dates: start: 20181101, end: 20191119
  3. ASPIRIN 325MG [Concomitant]
     Active Substance: ASPIRIN

REACTIONS (1)
  - Rash [None]

NARRATIVE: CASE EVENT DATE: 20181110
